FAERS Safety Report 9362067 (Version 1)
Quarter: 2013Q2

REPORT INFORMATION
  Report Type: Spontaneous
  Country: US (occurrence: US)
  Receive Date: 20130621
  Receipt Date: 20130621
  Transmission Date: 20140414
  Serious: No
  Sender: FDA-Public Use
  Company Number: US-009507513-1306USA008899

PATIENT
  Age: 54 Year
  Sex: Female

DRUGS (4)
  1. ASMANEX TWISTHALER [Suspect]
     Dosage: 2 PUFFS, QD
     Route: 055
     Dates: start: 20130615
  2. WARFARIN [Concomitant]
  3. LIVALO [Concomitant]
  4. PILOCARPINE [Concomitant]

REACTIONS (4)
  - Dyspnoea [Not Recovered/Not Resolved]
  - Drug ineffective [Unknown]
  - Drug dose omission [Unknown]
  - Product quality issue [Unknown]
